FAERS Safety Report 24700077 (Version 1)
Quarter: 2024Q4

REPORT INFORMATION
  Report Type: Spontaneous
  Country: US (occurrence: US)
  Receive Date: 20241205
  Receipt Date: 20241205
  Transmission Date: 20250114
  Serious: No
  Sender: ARS PHARMACEUTICALS
  Company Number: US-ARS PHARMACEUTICALS OPERATIONS, INC.-2024ARP00009

PATIENT
  Sex: Female

DRUGS (3)
  1. NEFFY [Suspect]
     Active Substance: EPINEPHRINE
     Indication: Nasal congestion
     Dosage: 2 MG, ONCE
     Route: 045
  2. NEFFY [Suspect]
     Active Substance: EPINEPHRINE
     Indication: Food allergy
  3. XOLAIR [Suspect]
     Active Substance: OMALIZUMAB

REACTIONS (3)
  - Rash [Unknown]
  - Abdominal pain upper [Unknown]
  - Off label use [Recovered/Resolved]
